FAERS Safety Report 8473852-6 (Version None)
Quarter: 2012Q2

REPORT INFORMATION
  Report Type: 
  Country: None (occurrence: None)
  Receive Date: 20120628
  Receipt Date: 20120123
  Transmission Date: 20120825
  Serious: Yes (Other)
  Sender: FDA-Public Use
  Company Number: US-MYLANLABS-2011S1026290

PATIENT
  Age: 40 Year
  Sex: Male
  Weight: 116.48 kg

DRUGS (7)
  1. DEPAKOTE [Concomitant]
  2. PROTONIX [Concomitant]
  3. ZYPREXA [Concomitant]
     Dates: start: 20111222
  4. CLOZAPINE [Suspect]
     Indication: SCHIZOAFFECTIVE DISORDER
     Route: 048
     Dates: start: 20111128, end: 20111227
  5. CLOZAPINE [Suspect]
     Indication: SCHIZOPHRENIA
     Route: 048
     Dates: start: 20111128, end: 20111227
  6. SYNTHROID [Concomitant]
  7. LEXAPRO [Concomitant]

REACTIONS (1)
  - GRANULOCYTOPENIA [None]
